FAERS Safety Report 6100490-2 (Version None)
Quarter: 2009Q1

REPORT INFORMATION
  Report Type: 
  Country: None (occurrence: None)
  Receive Date: 20090303
  Receipt Date: 20090218
  Transmission Date: 20090719
  Serious: Yes (Death, Other)
  Sender: FDA-Public Use
  Company Number: US-AVENTIS-200911232US

PATIENT
  Age: 54 Year
  Sex: Female

DRUGS (4)
  1. TAXOTERE [Suspect]
     Dosage: DOSE: 150 MG/M2
     Route: 042
     Dates: start: 20090129
  2. CARBOPLATIN [Suspect]
     Dosage: DOSE: 520 MG/M2
     Dates: start: 20090129
  3. HERCEPTIN [Suspect]
     Route: 042
     Dates: start: 20090209
  4. HERCEPTIN [Suspect]
     Route: 042
     Dates: start: 20090129

REACTIONS (5)
  - ABDOMINAL PAIN [None]
  - CAECITIS [None]
  - CARDIAC ARREST [None]
  - DIARRHOEA [None]
  - NEUTROPENIA [None]
